FAERS Safety Report 17601781 (Version 1)
Quarter: 2020Q1

REPORT INFORMATION
  Report Type: Spontaneous
  Country: US (occurrence: US)
  Receive Date: 20200330
  Receipt Date: 20200330
  Transmission Date: 20200409
  Serious: Yes (Other)
  Sender: FDA-Public Use
  Company Number: US-NOVOPROD-720492

PATIENT
  Age: 35 Year
  Sex: Female

DRUGS (2)
  1. VICTOZA [Suspect]
     Active Substance: LIRAGLUTIDE
     Dosage: 1.2 MG
     Route: 058
     Dates: end: 20200321
  2. VICTOZA [Suspect]
     Active Substance: LIRAGLUTIDE
     Indication: WEIGHT CONTROL
     Dosage: 0.6 MG
     Route: 058
     Dates: start: 20200305

REACTIONS (8)
  - Nausea [Recovered/Resolved]
  - Consciousness fluctuating [Recovered/Resolved]
  - Incorrect dose administered by device [Unknown]
  - Vomiting [Recovered/Resolved]
  - Off label use [Unknown]
  - Device malfunction [Unknown]
  - Diarrhoea [Recovered/Resolved]
  - Blood glucose decreased [Recovered/Resolved]

NARRATIVE: CASE EVENT DATE: 202003
